FAERS Safety Report 10369857 (Version 1)
Quarter: 2014Q3

REPORT INFORMATION
  Report Type: Spontaneous
  Country: US (occurrence: US)
  Receive Date: 20140808
  Receipt Date: 20140808
  Transmission Date: 20150326
  Serious: Yes (Hospitalization, Other)
  Sender: FDA-Public Use
  Company Number: US-ACCORD-025187

PATIENT
  Age: 40 Year
  Sex: Female

DRUGS (2)
  1. CARBOPLATIN. [Suspect]
     Active Substance: CARBOPLATIN
     Indication: CHOROID PLEXUS PAPILLOMA
     Dosage: CARBOPLATIN 350 MG/M2 (606 MG) ON DAYS 1 AND 2
  2. ETOPOSIDE. [Suspect]
     Active Substance: ETOPOSIDE
     Indication: CHOROID PLEXUS PAPILLOMA
     Dosage: ETOPOSIDE 100 MG/M2 (173 MG) ON DAYS 1-5

REACTIONS (6)
  - Sepsis [Recovered/Resolved]
  - Off label use [Unknown]
  - Hepatic function abnormal [Recovered/Resolved]
  - Arrhythmia [Recovered/Resolved]
  - Capnocytophaga infection [Recovered/Resolved]
  - Neutropenia [Recovered/Resolved]
